FAERS Safety Report 8078179-2 (Version None)
Quarter: 2012Q1

REPORT INFORMATION
  Report Type: 
  Country: None (occurrence: None)
  Receive Date: 20120127
  Receipt Date: 20080225
  Transmission Date: 20120608
  Serious: Yes (Hospitalization, Disabling, Other)
  Sender: FDA-Public Use
  Company Number: GB-SANTEN INC.-INC-11-000239

PATIENT
  Age: 43 Year
  Sex: Female

DRUGS (4)
  1. CHLORAMPHENICOL [Concomitant]
     Indication: SURGERY
     Dosage: 4 DROPS
     Route: 047
     Dates: start: 20070901
  2. CELLUVISC [Concomitant]
     Indication: DRY EYE
  3. TIMOLOL MALEATE [Suspect]
     Indication: GLAUCOMA
     Route: 047
     Dates: start: 20070901
  4. BETNESOL [Concomitant]
     Indication: SURGERY
     Dosage: 4 DROPS
     Route: 047
     Dates: start: 20070901

REACTIONS (1)
  - KERATOPATHY [None]
